FAERS Safety Report 5817368-1 (Version None)
Quarter: 2008Q3

REPORT INFORMATION
  Report Type: 
  Country: None (occurrence: None)
  Receive Date: 20080722
  Receipt Date: 20080130
  Transmission Date: 20090109
  Serious: No
  Sender: FDA-Public Use
  Company Number: US-BAYER-200813153NA

PATIENT
  Age: 43 Year
  Sex: Female

DRUGS (1)
  1. MIRENA [Suspect]
     Indication: CONTRACEPTION
     Route: 015
     Dates: start: 20070901

REACTIONS (9)
  - ABDOMINAL DISTENSION [None]
  - ACNE [None]
  - ANXIETY [None]
  - BLOOD PRESSURE INCREASED [None]
  - GENITAL HAEMORRHAGE [None]
  - MIGRAINE [None]
  - PROCEDURAL PAIN [None]
  - SKIN DISCOLOURATION [None]
  - SKIN DISORDER [None]
